FAERS Safety Report 5639540-6 (Version None)
Quarter: 2008Q1

REPORT INFORMATION
  Report Type: 
  Country: None (occurrence: None)
  Receive Date: 20080226
  Receipt Date: 20080219
  Transmission Date: 20080703
  Serious: No
  Sender: FDA-Public Use
  Company Number: US-BAXTER-2008BH001522

PATIENT
  Age: 55 Year
  Sex: Female

DRUGS (2)
  1. HEPARIN SODIUM [Suspect]
     Indication: THROMBOSIS PROPHYLAXIS
     Route: 065
     Dates: end: 20080214
  2. HEPARIN SODIUM [Suspect]
     Dosage: DOSE UNIT:UNKNOWN
     Route: 065
     Dates: start: 20050101

REACTIONS (5)
  - ARTHRITIS [None]
  - CHILLS [None]
  - INFLAMMATION [None]
  - MALAISE [None]
  - PYREXIA [None]
